FAERS Safety Report 6593501-1 (Version None)
Quarter: 2010Q1

REPORT INFORMATION
  Report Type: 
  Country: None (occurrence: None)
  Receive Date: 20100222
  Receipt Date: 20090701
  Transmission Date: 20100710
  Serious: No
  Sender: FDA-Public Use
  Company Number: US-BRISTOL-MYERS SQUIBB COMPANY-14653455

PATIENT
  Age: 75 Year
  Sex: Female
  Weight: 63 kg

DRUGS (19)
  1. ORENCIA [Suspect]
     Indication: RHEUMATOID ARTHRITIS
     Dosage: THERAPY DATES: 01APR09,30APR09,01JUN2009.
     Dates: start: 20090318
  2. LISINOPRIL [Concomitant]
  3. ATENOLOL [Concomitant]
  4. METHOTREXATE [Concomitant]
  5. SERTRALINE HCL [Concomitant]
  6. ISONIAZID [Concomitant]
  7. GLUCOSAMINE [Concomitant]
  8. CHONDROITIN [Concomitant]
  9. MILK THISTLE [Concomitant]
  10. JUICE PLUS [Concomitant]
  11. LOVAZA [Concomitant]
  12. IRON [Concomitant]
  13. FOLIC ACID [Concomitant]
  14. VITAMIN B6 [Concomitant]
  15. VITAMIN B COMPLEX CAP [Concomitant]
  16. VITAMIN B-12 [Concomitant]
  17. PERCOCET [Concomitant]
     Dosage: 1 DF = 650 UNITS NOT SPECIFIED
  18. ETODOLAC [Concomitant]
  19. VICODIN [Concomitant]

REACTIONS (3)
  - DECREASED APPETITE [None]
  - DRUG INEFFECTIVE [None]
  - WEIGHT DECREASED [None]
